FAERS Safety Report 24249393 (Version 1)
Quarter: 2024Q3

REPORT INFORMATION
  Report Type: Spontaneous
  Country: KR (occurrence: KR)
  Receive Date: 20240826
  Receipt Date: 20240826
  Transmission Date: 20241016
  Serious: Yes (Other)
  Sender: AMGEN
  Company Number: KR-KYOWAKIRIN-2024KK019735

PATIENT
  Age: 67 Year
  Sex: Female

DRUGS (4)
  1. NEUPOGEN [Suspect]
     Active Substance: FILGRASTIM
     Indication: Prophylaxis
     Dosage: 60 MG/M2
     Route: 065
     Dates: start: 20230330, end: 20230930
  2. CYCLOPHOSPHAMIDE [Suspect]
     Active Substance: CYCLOPHOSPHAMIDE
     Indication: Peripheral T-cell lymphoma unspecified
     Dosage: 750 MG/M2
     Route: 065
     Dates: start: 20230330, end: 20230930
  3. DOXORUBICIN HYDROCHLORIDE [Suspect]
     Active Substance: DOXORUBICIN HYDROCHLORIDE
     Indication: Peripheral T-cell lymphoma unspecified
     Dosage: 50 MG/M2
     Route: 065
     Dates: start: 20230330, end: 20230930
  4. METHYLPREDNISOLONE [Suspect]
     Active Substance: METHYLPREDNISOLONE
     Indication: Peripheral T-cell lymphoma unspecified
     Dosage: 100 MG
     Route: 065
     Dates: start: 20230330, end: 20230930

REACTIONS (1)
  - Neuropathy peripheral [Unknown]
